FAERS Safety Report 19077967 (Version 1)
Quarter: 2021Q1

REPORT INFORMATION
  Report Type: Spontaneous
  Country: US (occurrence: US)
  Receive Date: 20210331
  Receipt Date: 20210331
  Transmission Date: 20210420
  Serious: Yes (Death)
  Sender: FDA-Public Use
  Company Number: None

PATIENT
  Age: 17 Year
  Sex: Male
  Weight: 85.5 kg

DRUGS (1)
  1. FLUOXETINE [Suspect]
     Active Substance: FLUOXETINE HYDROCHLORIDE
     Indication: ERECTILE DYSFUNCTION
     Route: 048
     Dates: start: 20151214, end: 20160511

REACTIONS (3)
  - Disturbance in attention [None]
  - Erectile dysfunction [None]
  - Therapy interrupted [None]

NARRATIVE: CASE EVENT DATE: 20160511
